FAERS Safety Report 8967665 (Version 1)
Quarter: 2012Q4

REPORT INFORMATION
  Report Type: Spontaneous
  Country: US (occurrence: None)
  Receive Date: 20121206
  Receipt Date: 20121206
  Transmission Date: 20130627
  Serious: Yes (Other)
  Sender: FDA-Public Use
  Company Number: 100803-001447

PATIENT
  Age: 49 Year
  Sex: Female

DRUGS (1)
  1. MEANINGFUL BEAUTY ANTIOXIDANT DAY CREME SPF 20 [Suspect]
     Dosage: once daily dermal
     Route: 062
     Dates: start: 20100712, end: 20100719

REACTIONS (7)
  - Swelling face [None]
  - Blister [None]
  - Throat tightness [None]
  - Pyrexia [None]
  - Dyspnoea [None]
  - Feeling abnormal [None]
  - Treatment noncompliance [None]
